FAERS Safety Report 17584853 (Version 1)
Quarter: 2020Q1

REPORT INFORMATION
  Report Type: Spontaneous
  Country: JP (occurrence: JP)
  Receive Date: 20200326
  Receipt Date: 20200326
  Transmission Date: 20200409
  Serious: Yes (Other)
  Sender: FDA-Public Use
  Company Number: JP-BRISTOL-MYERS SQUIBB COMPANY-BMS-2020-023370

PATIENT
  Age: 88 Year
  Sex: Male

DRUGS (4)
  1. ELIQUIS [Suspect]
     Active Substance: APIXABAN
     Indication: DEEP VEIN THROMBOSIS
     Dosage: 10 MILLIGRAM, BID
     Route: 048
  2. HANGEKOBOKUTO [MAGNOLIA SPP. BARK;PERILLA FRUTESCENS VAR. CRISPA HERB; [Concomitant]
     Indication: HICCUPS
     Route: 065
  3. ELIQUIS [Suspect]
     Active Substance: APIXABAN
     Indication: CEREBROVASCULAR ACCIDENT PROPHYLAXIS
     Dosage: 5 MILLIGRAM, BID
     Route: 048
  4. ASPIRIN. [Suspect]
     Active Substance: ASPIRIN
     Indication: CEREBRAL INFARCTION
     Route: 048

REACTIONS (3)
  - Gastrooesophageal reflux disease [Unknown]
  - Peptic ulcer [Unknown]
  - Gastrointestinal haemorrhage [Unknown]
